FAERS Safety Report 6731628-1 (Version None)
Quarter: 2010Q2

REPORT INFORMATION
  Report Type: 
  Country: None (occurrence: None)
  Receive Date: 20100518
  Receipt Date: 20100518
  Transmission Date: 20101027
  Serious: Yes (Hospitalization)
  Sender: FDA-Public Use
  Company Number: None

PATIENT
  Sex: Female
  Weight: 26.3 kg

DRUGS (1)
  1. RITUXAN [Suspect]
     Indication: THROMBOCYTOPENIC PURPURA
     Dates: start: 20100430, end: 20100514

REACTIONS (5)
  - CHILLS [None]
  - INFUSION RELATED REACTION [None]
  - PYREXIA [None]
  - RASH [None]
  - TREMOR [None]
